FAERS Safety Report 9506045 (Version 1)
Quarter: 2013Q1

REPORT INFORMATION
  Report Type: Spontaneous
  Country: US (occurrence: None)
  Receive Date: 20130206
  Receipt Date: 20130206
  Transmission Date: 20140127
  Serious: Yes (Hospitalization)
  Sender: FDA-Public Use
  Company Number: DAV-AE-MTX-12-30

PATIENT
  Age: 37 Year
  Sex: Female

DRUGS (3)
  1. METHOTREXATE (METHOTREXATE) [Suspect]
     Indication: RHEUMATOID ARTHRITIS
     Dosage: UNK 2 TABLET (1 IN 1 WK)
     Dates: start: 20110929, end: 20120114
  2. HUMIRA [Suspect]
     Indication: RHEUMATOID ARTHRITIS
     Dosage: UNK (40 MG, 1 IN 2 WK)?
     Dates: start: 20120929, end: 20120114
  3. INSULIN ASPART (INSULIN ASPART) [Concomitant]

REACTIONS (1)
  - Anaemia [None]
